FAERS Safety Report 15736911 (Version 7)
Quarter: 2019Q3

REPORT INFORMATION
  Report Type: Report from Study
  Country: US (occurrence: US)
  Receive Date: 20181218
  Receipt Date: 20190917
  Transmission Date: 20191004
  Serious: Yes (Death, Hospitalization, Other)
  Sender: FDA-Public Use
  Company Number: US-ACTELION-A-NJ2018-168843

PATIENT
  Sex: Female
  Weight: 78.91 kg

DRUGS (3)
  1. TRACLEER [Suspect]
     Active Substance: BOSENTAN
     Indication: PULMONARY HYPERTENSION
     Dosage: 125 MG, BID
     Route: 048
  2. WARFARIN [Concomitant]
     Active Substance: WARFARIN
  3. AMLODIPINE [Concomitant]
     Active Substance: AMLODIPINE BESYLATE

REACTIONS (11)
  - Anaemia [Unknown]
  - Respiratory distress [Fatal]
  - Malaise [Unknown]
  - Lung neoplasm malignant [Unknown]
  - Pleural effusion [Unknown]
  - Dementia Alzheimer^s type [Unknown]
  - Hypoxia [Unknown]
  - Pneumonia [Recovered/Resolved]
  - Product dose omission [Unknown]
  - Fatigue [Unknown]
  - Acute respiratory failure [Unknown]
